FAERS Safety Report 9611481 (Version 1)
Quarter: 2013Q4

REPORT INFORMATION
  Report Type: Report from Study
  Country: GB (occurrence: GB)
  Receive Date: 20131010
  Receipt Date: 20131010
  Transmission Date: 20140711
  Serious: Yes (Other)
  Sender: FDA-Public Use
  Company Number: GB-ROCHE-1287038

PATIENT
  Sex: Female
  Weight: 75 kg

DRUGS (2)
  1. RITUXIMAB [Suspect]
     Indication: RHEUMATOID ARTHRITIS
     Route: 065
     Dates: start: 20130205, end: 20130220
  2. METHOTREXATE [Concomitant]

REACTIONS (1)
  - Ankle fracture [Unknown]
